FAERS Safety Report 7594713-0 (Version None)
Quarter: 2011Q3

REPORT INFORMATION
  Report Type: 
  Country: None (occurrence: None)
  Receive Date: 20110707
  Receipt Date: 20110629
  Transmission Date: 20111222
  Serious: Yes (Hospitalization, Other)
  Sender: FDA-Public Use
  Company Number: US-ASTELLAS-2011US003516

PATIENT
  Sex: Male
  Weight: 96 kg

DRUGS (1)
  1. ERLOTINIB HYDROCHLORIDE [Suspect]
     Indication: ACUTE MYELOID LEUKAEMIA
     Dosage: 150 MG, UID/QD
     Route: 048
     Dates: start: 20101116, end: 20101101

REACTIONS (13)
  - ARRHYTHMIA [None]
  - BLOOD GLUCOSE INCREASED [None]
  - FAILURE TO THRIVE [None]
  - CARDIAC FAILURE CONGESTIVE [None]
  - DIARRHOEA [None]
  - SYNCOPE [None]
  - DIZZINESS POSTURAL [None]
  - HYPOTHYROIDISM [None]
  - STAPHYLOCOCCAL INFECTION [None]
  - CHEST PAIN [None]
  - ANAEMIA [None]
  - ATRIAL FIBRILLATION [None]
  - PLEURAL EFFUSION [None]
